FAERS Safety Report 7344750-6 (Version None)
Quarter: 2011Q1

REPORT INFORMATION
  Report Type: 
  Country: None (occurrence: None)
  Receive Date: 20110310
  Receipt Date: 20110303
  Transmission Date: 20110831
  Serious: Yes (Life-Threatening)
  Sender: FDA-Public Use
  Company Number: JP-AMGEN-JPNCT2011006710

PATIENT
  Age: 72 Year
  Sex: Female
  Weight: 59 kg

DRUGS (6)
  1. ANTIHISTAMINES [Concomitant]
     Indication: PROPHYLAXIS
     Dosage: UNK
     Route: 065
  2. PANITUMUMAB [Suspect]
     Indication: COLORECTAL CANCER
     Dosage: 6 MG/KG, Q2WK
     Route: 042
     Dates: start: 20100716, end: 20101021
  3. FUROSEMIDE [Concomitant]
     Dosage: UNK
     Route: 048
  4. ALLEGRA [Concomitant]
     Dosage: UNK
     Route: 048
  5. DUROTEP [Concomitant]
     Dosage: UNK
     Route: 062
  6. MYSLEE [Concomitant]
     Dosage: UNK
     Route: 048

REACTIONS (4)
  - HYPOMAGNESAEMIA [None]
  - PARONYCHIA [None]
  - HYPOCALCAEMIA [None]
  - DERMATITIS ACNEIFORM [None]
